FAERS Safety Report 9914156 (Version 2)
Quarter: 2014Q2

REPORT INFORMATION
  Report Type: Report from Study
  Country: US (occurrence: US)
  Receive Date: 20140220
  Receipt Date: 20140430
  Transmission Date: 20141212
  Serious: No
  Sender: FDA-Public Use
  Company Number: US-PURDUE-USA-2014-0111230

PATIENT
  Sex: Male
  Weight: 68.27 kg

DRUGS (6)
  1. OXY CR TAB [Suspect]
     Indication: NEOPLASM MALIGNANT
     Dosage: UNK
     Route: 048
     Dates: start: 20130128
  2. OXY CR TAB [Suspect]
     Indication: BONE PAIN
     Dosage: 120 MG, BID
     Route: 048
     Dates: start: 20130909
  3. OXY CR TAB [Suspect]
     Dosage: 60 MG, Q12H
     Route: 048
     Dates: start: 20140109
  4. OXYCODONE HYDROCHLORIDE (SIMILAR TO NDA 22-272) [Concomitant]
     Indication: BREAKTHROUGH PAIN
     Dosage: 30 MG, Q3H PRN
     Route: 048
     Dates: start: 20120424
  5. PREDNISONE [Concomitant]
     Dosage: 5 MG, QAM
     Dates: start: 20130416
  6. MIRALAX                            /00754501/ [Concomitant]
     Indication: CONSTIPATION
     Dosage: UNKNOWN

REACTIONS (2)
  - Arthralgia [Unknown]
  - Bone pain [Unknown]
